FAERS Safety Report 16726699 (Version 1)
Quarter: 2019Q3

REPORT INFORMATION
  Report Type: Spontaneous
  Country: GB (occurrence: GB)
  Receive Date: 20190821
  Receipt Date: 20190821
  Transmission Date: 20191005
  Serious: Yes (Other)
  Sender: FDA-Public Use
  Company Number: GB-PFIZER INC-2019353586

PATIENT
  Age: 80 Year
  Sex: Male
  Weight: 93 kg

DRUGS (23)
  1. DICLOFENAC SODIUM. [Concomitant]
     Active Substance: DICLOFENAC SODIUM
     Dosage: 2 DF, 1X/DAY (APPLY)
     Dates: start: 20190507, end: 20190521
  2. LERCANIDIPINE HYDROCHLORIDE [Concomitant]
     Active Substance: LERCANIDIPINE HYDROCHLORIDE
     Dosage: 1 DF, 1X/DAY
     Dates: start: 20190529
  3. FLUTICASONE FUROATE [Concomitant]
     Active Substance: FLUTICASONE FUROATE
     Dosage: 4 DF, 1X/DAY (TWO IN EACH NOSTRIL)
     Route: 045
     Dates: start: 20180102
  4. ALFUZOSIN [Concomitant]
     Active Substance: ALFUZOSIN
     Indication: BLADDER DISORDER
     Dosage: 1 DF, 1X/DAY
     Dates: start: 20180102
  5. LOSARTAN. [Concomitant]
     Active Substance: LOSARTAN
     Indication: HYPERTENSION
     Dosage: 1 DF, 1X/DAY
     Dates: start: 20180102
  6. ESOMEPRAZOLE. [Concomitant]
     Active Substance: ESOMEPRAZOLE MAGNESIUM
     Indication: HYPERCHLORHYDRIA
     Dosage: 1 DF, 1X/DAY
     Dates: start: 20180102
  7. LEVOTHYROXINE. [Concomitant]
     Active Substance: LEVOTHYROXINE
     Indication: THYROID DISORDER
     Dosage: 125 UG, 1X/DAY
     Dates: start: 20180102
  8. FLECAINIDE ACETATE. [Concomitant]
     Active Substance: FLECAINIDE ACETATE
     Dosage: 2 DF, 1X/DAY (FOR THE HEART RHYTHM)
     Dates: start: 20180102
  9. NEOMYCIN SULFATE. [Concomitant]
     Active Substance: NEOMYCIN SULFATE
     Dosage: 8 DF, 1X/DAY (APPLY WITH COTTON BUD ONCE TO EACH NOSTRIL)
     Route: 045
     Dates: start: 20190417, end: 20190427
  10. RIVAROXABAN [Concomitant]
     Active Substance: RIVAROXABAN
     Indication: ANTICOAGULANT THERAPY
     Dosage: 1 DF, 1X/DAY
     Dates: start: 20180102
  11. LAXIDO [Concomitant]
     Active Substance: POLYETHYLENE GLYCOL 3350\POTASSIUM CHLORIDE\SODIUM BICARBONATE\SODIUM CHLORIDE
     Indication: CONSTIPATION
     Dosage: 1 DF, AS NEEDED
     Dates: start: 20190415
  12. ADCAL [CALCIUM CARBONATE] [Concomitant]
     Indication: BONE DISORDER
     Dosage: 4 DF, 1X/DAY (FOR THE BONES)
     Dates: start: 20180102
  13. DOXAZOSIN [Concomitant]
     Active Substance: DOXAZOSIN MESYLATE
     Indication: HYPERTENSION
     Dosage: 1 DF, 1X/DAY
     Dates: start: 20190325, end: 20190422
  14. ATORVASTATIN [Concomitant]
     Active Substance: ATORVASTATIN
     Indication: PROPHYLAXIS
     Dosage: 1 DF, 1X/DAY
     Dates: start: 20190111
  15. AMLODIPINE BESILATE [Suspect]
     Active Substance: AMLODIPINE BESYLATE
     Indication: HYPERTENSION
     Dosage: 5 MG, 1X/DAY
     Dates: start: 20190318
  16. GABAPENTIN. [Concomitant]
     Active Substance: GABAPENTIN
     Dosage: UNK (UP TO THREE CAPSULES UP TO THREE TIMES A DAY)
     Dates: start: 20180307, end: 20190318
  17. SOLIFENACIN [Concomitant]
     Active Substance: SOLIFENACIN
     Indication: BLADDER DISORDER
     Dosage: UNK (TAKE ONE OR TWO A DAY)
     Dates: start: 20180102
  18. FUSIDIC ACID [Concomitant]
     Active Substance: FUSIDIC ACID
     Dosage: UNK (USE AS DIRECTED)
     Dates: start: 20190517, end: 20190524
  19. CIPROFLOXACIN. [Concomitant]
     Active Substance: CIPROFLOXACIN
     Dosage: 1 DF, 1X/DAY (FOR 6 WEEKS)
     Dates: start: 20190507, end: 20190514
  20. PROCHLORPERAZINE. [Concomitant]
     Active Substance: PROCHLORPERAZINE
     Indication: NAUSEA
     Dosage: UNK (USE 1-2 UNDER TOP LIP UP TO TWICE DAILY)
     Dates: start: 20190410, end: 20190416
  21. SILDENAFIL. [Concomitant]
     Active Substance: SILDENAFIL
     Dosage: 1 DF, AS NEEDED (ABOUT AN HOUR BEFORE NEEDED)
     Dates: start: 20180102
  22. PREGABALIN. [Concomitant]
     Active Substance: PREGABALIN
     Indication: PAIN
     Dosage: 2 DF, 1X/DAY
     Dates: start: 20190507
  23. DAKTACORT [Concomitant]
     Active Substance: HYDROCORTISONE\MICONAZOLE NITRATE
     Dosage: 3 DF, 1X/DAY (APPLY TO AFFECTED AREA)
     Dates: start: 20190304, end: 20190305

REACTIONS (1)
  - Joint swelling [Not Recovered/Not Resolved]

NARRATIVE: CASE EVENT DATE: 2019
